FAERS Safety Report 7000664-2 (Version None)
Quarter: 2010Q3

REPORT INFORMATION
  Report Type: 
  Country: None (occurrence: None)
  Receive Date: 20100920
  Receipt Date: 20100421
  Transmission Date: 20110219
  Serious: No
  Sender: FDA-Public Use
  Company Number: US-ASTRAZENECA-2010SE17723

PATIENT
  Age: 48 Year
  Sex: Female
  Weight: 68 kg

DRUGS (8)
  1. SEROQUEL [Suspect]
     Indication: BIPOLAR DISORDER
     Route: 048
     Dates: start: 20010101, end: 20100101
  2. SEROQUEL [Suspect]
     Indication: DEPRESSION
     Route: 048
     Dates: start: 20010101, end: 20100101
  3. NEXIUM [Concomitant]
  4. WELLBUTRIN [Concomitant]
  5. LAMICTAL [Concomitant]
  6. SYNTHROID [Concomitant]
  7. INDERAL [Concomitant]
  8. NEURONTIN [Concomitant]

REACTIONS (3)
  - DRUG DOSE OMISSION [None]
  - EATING DISORDER [None]
  - INSOMNIA [None]
